FAERS Safety Report 9160988 (Version 2)
Quarter: 2013Q3

REPORT INFORMATION
  Report Type: Spontaneous
  Country: DE (occurrence: None)
  Receive Date: 20130116
  Receipt Date: 20130903
  Transmission Date: 20140515
  Serious: Yes (Other)
  Sender: FDA-Public Use
  Company Number: 2013034420

PATIENT
  Age: 51 Year
  Sex: Male

DRUGS (2)
  1. VIVAGLOBIN [Suspect]
     Indication: LEWIS-SUMNER SYNDROME
     Dosage: 9.6 G 1X/WEEK
     Route: 058
  2. ASS (ACETYLSALICYLIC ACID) [Concomitant]

REACTIONS (8)
  - Lewis-Sumner syndrome [None]
  - Disease progression [None]
  - Dysaesthesia [None]
  - Paraesthesia [None]
  - Muscular weakness [None]
  - Extensor plantar response [None]
  - Injection site swelling [None]
  - Injection site erythema [None]
